FAERS Safety Report 12254787 (Version 1)
Quarter: 2016Q2

REPORT INFORMATION
  Report Type: Spontaneous
  Country: HR (occurrence: HR)
  Receive Date: 20160411
  Receipt Date: 20160411
  Transmission Date: 20160815
  Serious: Yes (Other)
  Sender: FDA-Public Use
  Company Number: ALCN2016HR002409

PATIENT
  Age: 78 Year
  Sex: Female
  Weight: 60 kg

DRUGS (3)
  1. MAXITROL [Suspect]
     Active Substance: DEXAMETHASONE\NEOMYCIN SULFATE\POLYMYXIN B SULFATE
     Indication: CATARACT
     Dosage: 1 GTT, TID
     Route: 047
     Dates: start: 20160128, end: 20160131
  2. SKOPRYL PLUS [Concomitant]
     Indication: ESSENTIAL HYPERTENSION
     Dosage: 1 DF, QD
     Route: 048
  3. LACIPIL [Concomitant]
     Active Substance: LACIDIPINE
     Indication: ESSENTIAL HYPERTENSION
     Dosage: 4 MG, QD
     Route: 048

REACTIONS (3)
  - Angioedema [Recovered/Resolved]
  - Face oedema [Recovered/Resolved]
  - Lip oedema [Recovered/Resolved]

NARRATIVE: CASE EVENT DATE: 20160201
